FAERS Safety Report 10407498 (Version 2)
Quarter: 2014Q3

REPORT INFORMATION
  Report Type: Spontaneous
  Country: US (occurrence: US)
  Receive Date: 20140825
  Receipt Date: 20140825
  Transmission Date: 20150326
  Serious: Yes (Hospitalization, Other)
  Sender: FDA-Public Use
  Company Number: US-009507513-2009SP020359

PATIENT
  Sex: Female
  Weight: 78.47 kg

DRUGS (11)
  1. NUVARING [Suspect]
     Active Substance: ETHINYL ESTRADIOL\ETONOGESTREL
     Indication: PRODUCT USED FOR UNKNOWN INDICATION
     Dosage: UNK
     Route: 067
     Dates: start: 200502, end: 200605
  2. TYLENOL [Concomitant]
     Active Substance: ACETAMINOPHEN
     Indication: NECK PAIN
     Dosage: 1000 MG, TIW
  3. PREVACID [Concomitant]
     Active Substance: LANSOPRAZOLE
     Indication: GASTROOESOPHAGEAL REFLUX DISEASE
     Dosage: 30 MG, QD
     Dates: start: 2005
  4. MOTRIN [Concomitant]
     Active Substance: IBUPROFEN
     Indication: NECK PAIN
     Dosage: 600 MG, TIW
  5. TYLENOL [Concomitant]
     Active Substance: ACETAMINOPHEN
     Indication: BACK PAIN
     Dosage: 1000 MG, UNK
  6. CELEBREX [Concomitant]
     Active Substance: CELECOXIB
     Indication: PRODUCT USED FOR UNKNOWN INDICATION
  7. MOTRIN [Concomitant]
     Active Substance: IBUPROFEN
     Indication: BACK PAIN
     Dosage: 600 MG, TIW
  8. MOBIC [Concomitant]
     Active Substance: MELOXICAM
     Indication: PRODUCT USED FOR UNKNOWN INDICATION
  9. PRILOSEC [Concomitant]
     Active Substance: OMEPRAZOLE MAGNESIUM
     Indication: GASTROOESOPHAGEAL REFLUX DISEASE
     Dosage: 20 MG, UNK
     Dates: start: 1990, end: 2005
  10. PHENTERMINE HYDROCHLORIDE. [Concomitant]
     Active Substance: PHENTERMINE HYDROCHLORIDE
     Indication: PRODUCT USED FOR UNKNOWN INDICATION
     Dosage: 37.5 MG, QD
     Route: 048
  11. ULTRAM [Concomitant]
     Active Substance: TRAMADOL HYDROCHLORIDE
     Indication: PRODUCT USED FOR UNKNOWN INDICATION
     Dosage: 50 MG, UNK

REACTIONS (20)
  - Visual field defect [Recovering/Resolving]
  - Venous thrombosis limb [Recovered/Resolved]
  - Pulmonary embolism [Recovered/Resolved]
  - Hepatic steatosis [Unknown]
  - Lymphadenopathy [Unknown]
  - Hiatus hernia [Unknown]
  - Fatigue [Unknown]
  - Intracranial pressure increased [Unknown]
  - Seborrhoeic keratosis [Unknown]
  - Weight increased [Unknown]
  - Upper respiratory tract infection [Unknown]
  - Superior sagittal sinus thrombosis [Recovered/Resolved]
  - Lymphadenopathy [Unknown]
  - Nerve compression [Unknown]
  - Peripheral swelling [Unknown]
  - Melanocytic naevus [Unknown]
  - Papilloedema [Recovered/Resolved]
  - Squamous cell carcinoma [Unknown]
  - Vasculitis cerebral [Unknown]
  - Headache [Not Recovered/Not Resolved]

NARRATIVE: CASE EVENT DATE: 200512
